FAERS Safety Report 25758141 (Version 1)
Quarter: 2025Q3

REPORT INFORMATION
  Report Type: Spontaneous
  Country: CN (occurrence: CN)
  Receive Date: 20250903
  Receipt Date: 20250903
  Transmission Date: 20251020
  Serious: Yes (Other)
  Sender: BAXTER
  Company Number: None

PATIENT
  Age: 59 Year
  Sex: Female
  Weight: 44 kg

DRUGS (5)
  1. CYCLOPHOSPHAMIDE [Suspect]
     Active Substance: CYCLOPHOSPHAMIDE
     Indication: Breast cancer female
     Dosage: 670 MG, QD + NS 40ML, EC REGIMEN C4 COURSE OF CHEMOTHERAPY
     Route: 042
     Dates: start: 20250514, end: 20250514
  2. SODIUM CHLORIDE [Suspect]
     Active Substance: SODIUM CHLORIDE
     Dosage: 40 ML, QD + CYCLOPHOSPHAMIDE (ENDOXAN) 0.67G, EC REGIMEN C4 COURSE OF CHEMOTHERAPY W
     Route: 042
     Dates: start: 20250514, end: 20250514
  3. SODIUM CHLORIDE [Suspect]
     Active Substance: SODIUM CHLORIDE
     Dosage: 100 ML, QD + EPIRUBICIN (PHARMORUBICIN) 100MG, EC REGIMEN C4 COURSE OF CHEMOTHERAPY
     Route: 041
     Dates: start: 20250514, end: 20250514
  4. EPIRUBICIN [Suspect]
     Active Substance: EPIRUBICIN
     Indication: Breast cancer female
     Dosage: 100 MG, QD + NS 100ML, EC REGIMEN C4 COURSE OF CHEMOTHERAPY
     Route: 041
     Dates: start: 20250514, end: 20250514
  5. PEGYLATED GRANULOCYTE COLONY-STIMULATING FACTOR [Concomitant]
     Active Substance: PEGYLATED GRANULOCYTE COLONY-STIMULATING FACTOR
     Route: 058
     Dates: start: 20250516

REACTIONS (2)
  - Neutrophil count decreased [Recovered/Resolved]
  - White blood cell count decreased [Recovered/Resolved]

NARRATIVE: CASE EVENT DATE: 20250521
